FAERS Safety Report 24008206 (Version 1)
Quarter: 2024Q2

REPORT INFORMATION
  Report Type: Spontaneous
  Country: AU (occurrence: AU)
  Receive Date: 20240625
  Receipt Date: 20240625
  Transmission Date: 20240716
  Serious: Yes (Other)
  Sender: FDA-Public Use
  Company Number: AU-002147023-NVSC2023AU255637

PATIENT
  Sex: Female

DRUGS (3)
  1. KESIMPTA [Suspect]
     Active Substance: OFATUMUMAB
     Indication: Product used for unknown indication
     Dosage: 20 MG, QMO,EVERY 30 DAYS
     Route: 058
     Dates: start: 2023
  2. METFORMIN HYDROCHLORIDE [Suspect]
     Active Substance: METFORMIN HYDROCHLORIDE
     Dosage: 100 MG
     Route: 048
     Dates: start: 1994
  3. METFORMIN HYDROCHLORIDE [Suspect]
     Active Substance: METFORMIN HYDROCHLORIDE
     Indication: Product used for unknown indication
     Dosage: UNKNOWN
     Route: 048

REACTIONS (14)
  - Paralysis [Unknown]
  - COVID-19 [Unknown]
  - Alopecia [Unknown]
  - Nail ridging [Unknown]
  - Nervousness [Unknown]
  - Paraesthesia [Unknown]
  - Anal incontinence [Unknown]
  - Dry skin [Unknown]
  - Feeling cold [Unknown]
  - Gait inability [Unknown]
  - Hypoaesthesia [Unknown]
  - Headache [Unknown]
  - Diarrhoea [Unknown]
  - Pruritus [Unknown]
